FAERS Safety Report 20647534 (Version 1)
Quarter: 2022Q1

REPORT INFORMATION
  Report Type: Report from Study
  Country: US (occurrence: US)
  Receive Date: 20220329
  Receipt Date: 20220329
  Transmission Date: 20220423
  Serious: Yes (Other)
  Sender: FDA-Public Use
  Company Number: US-ABBVIE-22K-163-4329876-00

PATIENT
  Age: 20 Year
  Sex: Male

DRUGS (1)
  1. SKYRIZI [Suspect]
     Active Substance: RISANKIZUMAB-RZAA
     Indication: Psoriasis
     Route: 058
     Dates: start: 20220323

REACTIONS (10)
  - Loss of consciousness [Recovering/Resolving]
  - Dizziness [Unknown]
  - Pallor [Unknown]
  - Injection site haemorrhage [Recovered/Resolved]
  - Injection site bruising [Unknown]
  - Eye disorder [Unknown]
  - Vision blurred [Unknown]
  - Chest discomfort [Unknown]
  - Nausea [Unknown]
  - Muscle tightness [Unknown]

NARRATIVE: CASE EVENT DATE: 20220323
